FAERS Safety Report 13186611 (Version 1)
Quarter: 2017Q1

REPORT INFORMATION
  Report Type: Report from Study
  Country: US (occurrence: US)
  Receive Date: 20170205
  Receipt Date: 20170205
  Transmission Date: 20170428
  Serious: Yes (Hospitalization)
  Sender: FDA-Public Use
  Company Number: US-EXELIXIS-CABO-16006523

PATIENT
  Sex: Female
  Weight: 113 kg

DRUGS (1)
  1. COMETRIQ [Suspect]
     Active Substance: CABOZANTINIB S-MALATE
     Indication: THYROID CANCER
     Dosage: 140 MG, QD
     Route: 048
     Dates: start: 20160603

REACTIONS (16)
  - Skin burning sensation [Unknown]
  - Scar [Unknown]
  - Burning sensation [Unknown]
  - Pruritus [Unknown]
  - Functional gastrointestinal disorder [Unknown]
  - Abdominal discomfort [Unknown]
  - Hypersensitivity [Unknown]
  - Nausea [Unknown]
  - Dry skin [Unknown]
  - Skin exfoliation [Unknown]
  - Skin swelling [Unknown]
  - Headache [Unknown]
  - Ageusia [Unknown]
  - Stomatitis [Unknown]
  - Rash [Unknown]
  - Constipation [Unknown]
